FAERS Safety Report 18339355 (Version 1)
Quarter: 2020Q4

REPORT INFORMATION
  Report Type: Spontaneous
  Country: US (occurrence: US)
  Receive Date: 20201002
  Receipt Date: 20201002
  Transmission Date: 20210113
  Serious: No
  Sender: FDA-Public Use
  Company Number: US-XERIS PHARMACEUTICALS-2020XER00009

PATIENT
  Sex: Female

DRUGS (2)
  1. GVOKE [Suspect]
     Active Substance: GLUCAGON
  2. GVOKE [Suspect]
     Active Substance: GLUCAGON
     Dosage: UNK

REACTIONS (3)
  - Needle issue [Recovered/Resolved]
  - Device malfunction [Recovered/Resolved]
  - No adverse event [Unknown]
